FAERS Safety Report 9551341 (Version 2)
Quarter: 2013Q3

REPORT INFORMATION
  Report Type: Report from Study
  Country: US (occurrence: US)
  Receive Date: 20130925
  Receipt Date: 20130925
  Transmission Date: 20140515
  Serious: Yes (Hospitalization)
  Sender: FDA-Public Use
  Company Number: US-BRISTOL-MYERS SQUIBB COMPANY-14848410

PATIENT
  Age: 49 Year
  Sex: Male

DRUGS (6)
  1. IPILIMUMAB [Suspect]
     Indication: MALIGNANT MELANOMA
     Route: 042
     Dates: start: 20080909
  2. KEPPRA [Concomitant]
     Dates: start: 20080410
  3. SODIUM CHLORIDE [Concomitant]
     Dates: start: 20091104, end: 20091104
  4. ACETAMINOPHEN [Concomitant]
     Dates: start: 20091104, end: 20091104
  5. LEVOFLOXACIN [Concomitant]
     Dates: start: 20091104, end: 20091105
  6. ONDANSETRON [Concomitant]
     Dates: start: 20091104, end: 20091104

REACTIONS (5)
  - Hypopituitarism [Recovered/Resolved with Sequelae]
  - Adrenal insufficiency [Recovered/Resolved]
  - Autoimmune disorder [Recovered/Resolved with Sequelae]
  - Hypothyroidism [Recovered/Resolved with Sequelae]
  - Fatigue [Recovered/Resolved]
